FAERS Safety Report 5815775-4 (Version None)
Quarter: 2008Q3

REPORT INFORMATION
  Report Type: 
  Country: None (occurrence: None)
  Receive Date: 20080716
  Receipt Date: 20080716
  Transmission Date: 20090109
  Serious: No
  Sender: FDA-Public Use
  Company Number: None

PATIENT
  Age: 49 Year
  Sex: Male
  Weight: 66.2252 kg

DRUGS (1)
  1. VICODIN ES [Suspect]
     Indication: BACK PAIN
     Dosage: ONE TABLET EVERY 8 HOURS PO
     Route: 048
     Dates: start: 20080709, end: 20080715

REACTIONS (2)
  - DRUG INEFFECTIVE [None]
  - THERAPEUTIC RESPONSE UNEXPECTED WITH DRUG SUBSTITUTION [None]
